FAERS Safety Report 15664009 (Version 1)
Quarter: 2018Q4

REPORT INFORMATION
  Report Type: Spontaneous
  Country: US (occurrence: US)
  Receive Date: 20181128
  Receipt Date: 20181128
  Transmission Date: 20190205
  Serious: Yes (Other)
  Sender: FDA-Public Use
  Company Number: US-ASTRAZENECA-2018SF53098

PATIENT

DRUGS (1)
  1. NEXIUM [Suspect]
     Active Substance: ESOMEPRAZOLE MAGNESIUM
     Dosage: FROM 2009 TO 2016
     Route: 048
     Dates: start: 2009, end: 2016

REACTIONS (1)
  - Chronic kidney disease [Unknown]
